FAERS Safety Report 14492780 (Version 1)
Quarter: 2018Q1

REPORT INFORMATION
  Report Type: Spontaneous
  Country: US (occurrence: US)
  Receive Date: 20180206
  Receipt Date: 20180206
  Transmission Date: 20180509
  Serious: No
  Sender: FDA-Public Use
  Company Number: US-JNJFOC-20171210220

PATIENT
  Age: 62 Year
  Sex: Female
  Weight: 88.45 kg

DRUGS (2)
  1. CHILDRENS ZYRTEC ALLERGY [Suspect]
     Active Substance: CETIRIZINE HYDROCHLORIDE
     Route: 065
  2. CHILDRENS ZYRTEC ALLERGY [Suspect]
     Active Substance: CETIRIZINE HYDROCHLORIDE
     Indication: ALLERGY TO ARTHROPOD STING
     Dosage: LITTLE TINY DOSES, 2.5 ML ONE TO TWO TIMES PER DAY FOR ONE OR 2 DAYS
     Route: 065

REACTIONS (1)
  - Product use in unapproved indication [Unknown]
